FAERS Safety Report 7122408-6 (Version None)
Quarter: 2010Q4

REPORT INFORMATION
  Report Type: 
  Country: None (occurrence: None)
  Receive Date: 20101124
  Receipt Date: 20101117
  Transmission Date: 20110411
  Serious: Yes (Hospitalization)
  Sender: FDA-Public Use
  Company Number: JP-NOVOPROD-315669

PATIENT
  Age: 57 Year
  Sex: Male
  Weight: 89 kg

DRUGS (12)
  1. VICTOZA [Suspect]
     Indication: TYPE 2 DIABETES MELLITUS
     Dosage: 0.6 MG, QD
     Route: 058
     Dates: start: 20100830, end: 20100905
  2. VICTOZA [Suspect]
     Dosage: 0.3 MG, QD
     Dates: start: 20100823, end: 20100829
  3. VICTOZA [Suspect]
     Dosage: 0.9 MG, QD
     Dates: start: 20100906, end: 20100917
  4. MELBIN                             /00082702/ [Suspect]
     Indication: TYPE 2 DIABETES MELLITUS
     Dosage: 1500 MG, QD
     Route: 048
     Dates: start: 20100817, end: 20100921
  5. ALOSITOL [Concomitant]
     Indication: GOUT
     Dosage: 200 MG, QD
     Route: 048
  6. ADALAT CC [Concomitant]
     Indication: HYPERTENSION
     Dosage: 40 MG, QD
     Route: 048
  7. LIPITOR [Concomitant]
     Indication: LIPIDS ABNORMAL
     Dosage: 10 MG, QD
     Route: 048
     Dates: end: 20100921
  8. ALDOMET                            /00000101/ [Concomitant]
     Dosage: 375 MG, QD
     Route: 048
  9. ALLOPURINOL [Concomitant]
     Dosage: 200 MG, QD
     Route: 048
     Dates: end: 20100921
  10. GLYBURIDE [Concomitant]
     Dosage: 5 MG, QD
     Route: 048
     Dates: start: 20100817, end: 20100824
  11. GLYBURIDE [Concomitant]
     Dosage: 2.5 UNK, UNK
     Dates: start: 20100825
  12. AMARYL [Concomitant]
     Dosage: UNK
     Dates: start: 20101012

REACTIONS (8)
  - ABDOMINAL DISCOMFORT [None]
  - DECREASED APPETITE [None]
  - DEHYDRATION [None]
  - DIARRHOEA [None]
  - HYPERGLYCAEMIA [None]
  - NAUSEA [None]
  - RENAL IMPAIRMENT [None]
  - VOMITING [None]
